FAERS Safety Report 6382366-9 (Version None)
Quarter: 2009Q3

REPORT INFORMATION
  Report Type: 
  Country: None (occurrence: None)
  Receive Date: 20090930
  Receipt Date: 20090921
  Transmission Date: 20100115
  Serious: No
  Sender: FDA-Public Use
  Company Number: US-B.I. PHARMACEUTICALS,INC./RIDGEFIELD-2009-BP-10420BP

PATIENT
  Sex: Female

DRUGS (3)
  1. SPIRIVA [Suspect]
     Indication: CHRONIC OBSTRUCTIVE PULMONARY DISEASE
     Dosage: 18 MCG
     Dates: start: 20090401
  2. COMBIVENT [Suspect]
     Indication: DYSPNOEA
  3. QVAR 40 [Suspect]
     Indication: DYSPNOEA

REACTIONS (2)
  - DRY MOUTH [None]
  - ORAL DISCOMFORT [None]
